FAERS Safety Report 5679322-2 (Version None)
Quarter: 2008Q1

REPORT INFORMATION
  Report Type: 
  Country: None (occurrence: None)
  Receive Date: 20080325
  Receipt Date: 20080319
  Transmission Date: 20080703
  Serious: Yes (Congenital Anomaly, Other)
  Sender: FDA-Public Use
  Company Number: US-GENENTECH-257548

PATIENT
  Sex: Female
  Weight: 74.376 kg

DRUGS (11)
  1. HERCEPTIN [Suspect]
     Indication: BREAST CANCER
     Dosage: 300 MG, SINGLE
     Route: 042
     Dates: start: 20071210
  2. HERCEPTIN [Suspect]
     Dosage: 150 MG, 1/WEEK
     Route: 042
  3. DECADRON [Concomitant]
     Indication: DRUG USE FOR UNKNOWN INDICATION
  4. BENADRYL [Concomitant]
     Indication: DRUG USE FOR UNKNOWN INDICATION
  5. TAGAMET [Concomitant]
     Indication: DRUG USE FOR UNKNOWN INDICATION
  6. ALOXI [Concomitant]
     Indication: DRUG USE FOR UNKNOWN INDICATION
  7. CYTOXAN [Concomitant]
     Indication: DRUG USE FOR UNKNOWN INDICATION
  8. FLUOROURACIL [Concomitant]
     Indication: DRUG USE FOR UNKNOWN INDICATION
  9. DOXIL [Concomitant]
     Indication: DRUG USE FOR UNKNOWN INDICATION
  10. HERCEPTIN [Concomitant]
     Indication: DRUG USE FOR UNKNOWN INDICATION
  11. PROCRIT [Concomitant]
     Indication: DRUG USE FOR UNKNOWN INDICATION

REACTIONS (1)
  - SUBDURAL HAEMATOMA [None]
